FAERS Safety Report 24575293 (Version 1)
Quarter: 2024Q4

REPORT INFORMATION
  Report Type: Spontaneous
  Country: US (occurrence: None)
  Receive Date: 20241101
  Receipt Date: 20241101
  Transmission Date: 20250115
  Serious: Yes (Life-Threatening, Hospitalization, Other)
  Sender: Public
  Company Number: None

PATIENT
  Age: 50 Year
  Sex: Female
  Weight: 87 kg

DRUGS (3)
  1. RITUXAN [Suspect]
     Active Substance: RITUXIMAB
     Indication: Interstitial lung disease
     Dosage: OTHER FREQUENCY : ONCE;?
     Route: 042
     Dates: start: 20241018, end: 20241018
  2. RITUXAN [Suspect]
     Active Substance: RITUXIMAB
     Indication: Scleroderma
  3. .DELTA.8-TETRAHYDROCANNABINOL\HERBALS [Suspect]
     Active Substance: .DELTA.8-TETRAHYDROCANNABINOL\HERBALS

REACTIONS (19)
  - Infusion related reaction [None]
  - Myalgia [None]
  - Arthralgia [None]
  - Chills [None]
  - Hypertension [None]
  - Troponin increased [None]
  - Blood lactic acid increased [None]
  - Rhabdomyolysis [None]
  - Myositis [None]
  - Pruritus [None]
  - Peripheral swelling [None]
  - Peripheral swelling [None]
  - Pain [None]
  - Sickle cell anaemia with crisis [None]
  - Haemoglobin decreased [None]
  - Oesophagitis [None]
  - Gastritis [None]
  - Drug screen positive [None]
  - Drug withdrawal syndrome [None]

NARRATIVE: CASE EVENT DATE: 20241021
